FAERS Safety Report 5308158-7 (Version None)
Quarter: 2007Q2

REPORT INFORMATION
  Report Type: 
  Country: None (occurrence: None)
  Receive Date: 20070426
  Receipt Date: 20070416
  Transmission Date: 20071010
  Serious: Yes (Disabling)
  Sender: FDA-Public Use
  Company Number: PHNR2007AU00915

PATIENT
  Age: 26 Year
  Sex: Male

DRUGS (3)
  1. CLOZARIL [Suspect]
     Indication: SCHIZOPHRENIA
     Dosage: 12.5 MG - 300 MG DAILY
     Route: 048
     Dates: start: 20060215, end: 20070310
  2. RISPERDAL CONSTA [Suspect]
     Dosage: 25 MG, BIW
     Route: 030
     Dates: start: 20061109
  3. RISPERDAL CONSTA [Suspect]
     Dosage: 37.5 MG, BIW
     Route: 030
     Dates: start: 20070405

REACTIONS (3)
  - PSYCHOTIC DISORDER [None]
  - SEDATION [None]
  - TREATMENT NONCOMPLIANCE [None]
